FAERS Safety Report 17402313 (Version 2)
Quarter: 2020Q2

REPORT INFORMATION
  Report Type: Spontaneous
  Country: US (occurrence: US)
  Receive Date: 20200211
  Receipt Date: 20200422
  Transmission Date: 20200713
  Serious: Yes (Other)
  Sender: FDA-Public Use
  Company Number: US-SA-2020SA032862

PATIENT
  Age: 37 Year
  Sex: Female
  Weight: 56.69 kg

DRUGS (13)
  1. TAXOTERE [Suspect]
     Active Substance: DOCETAXEL
     Dosage: 155 MG, Q3W
     Route: 042
     Dates: start: 20141002, end: 20141002
  2. HERCEPTIN [Concomitant]
     Active Substance: TRASTUZUMAB
  3. ALOXI [Concomitant]
     Active Substance: PALONOSETRON HYDROCHLORIDE
  4. TAXOTERE [Suspect]
     Active Substance: DOCETAXEL
     Indication: BREAST CANCER FEMALE
     Dosage: 155 MG, Q3W
     Route: 042
     Dates: start: 20140605, end: 20140605
  5. PARAPLATIN [Concomitant]
     Active Substance: CARBOPLATIN
     Indication: BREAST CANCER FEMALE
  6. HEPARIN [Concomitant]
     Active Substance: HEPARIN SODIUM
  7. FAMOTIDINE. [Concomitant]
     Active Substance: FAMOTIDINE
  8. DECADRON [Concomitant]
     Active Substance: DEXAMETHASONE
  9. TYLENOL [Concomitant]
     Active Substance: ACETAMINOPHEN
  10. EMEND [FOSAPREPITANT MEGLUMINE] [Concomitant]
  11. TAMOXIFEN [Concomitant]
     Active Substance: TAMOXIFEN
  12. DIPHENHYDRAMINE. [Concomitant]
     Active Substance: DIPHENHYDRAMINE
  13. KADCYLA [Concomitant]
     Active Substance: ADO-TRASTUZUMAB EMTANSINE

REACTIONS (3)
  - Emotional distress [Unknown]
  - Alopecia [Recovering/Resolving]
  - Psychological trauma [Unknown]

NARRATIVE: CASE EVENT DATE: 201507
